FAERS Safety Report 22181675 (Version 5)
Quarter: 2023Q2

REPORT INFORMATION
  Report Type: Report from Study
  Country: PL (occurrence: PL)
  Receive Date: 20230406
  Receipt Date: 20230510
  Transmission Date: 20230721
  Serious: Yes (Hospitalization)
  Sender: FDA-Public Use
  Company Number: PL-PFIZER INC-PV202300058149

PATIENT
  Age: 49 Year
  Sex: Female
  Weight: 70.2 kg

DRUGS (2)
  1. ABROCITINIB [Suspect]
     Active Substance: ABROCITINIB
     Indication: Dermatitis atopic
     Dosage: 2 TABLET, 1X/DAY
     Route: 048
     Dates: start: 20210617, end: 20230323
  2. ETHINYL ESTRADIOL\GESTODENE [Suspect]
     Active Substance: ETHINYL ESTRADIOL\GESTODENE
     Indication: Contraception
     Dosage: 0.077 MG, QD
     Route: 048
     Dates: start: 20210108, end: 20230325

REACTIONS (1)
  - Cerebral thrombosis [Recovered/Resolved]

NARRATIVE: CASE EVENT DATE: 20230313
